FAERS Safety Report 9057915 (Version 1)
Quarter: 2013Q1

REPORT INFORMATION
  Report Type: Spontaneous
  Country: GB (occurrence: GB)
  Receive Date: 20130210
  Receipt Date: 20130210
  Transmission Date: 20140127
  Serious: Yes (Hospitalization)
  Sender: FDA-Public Use
  Company Number: GB-TEVA-383754ISR

PATIENT
  Age: 71 Year
  Sex: Male
  Weight: 76 kg

DRUGS (9)
  1. CLARITHROMYCIN [Suspect]
     Indication: UPPER RESPIRATORY TRACT INFECTION
     Route: 048
     Dates: start: 20121224, end: 20121228
  2. TACROLIMUS [Interacting]
     Indication: RENAL TRANSPLANT
     Route: 048
     Dates: start: 201208
  3. MYCOPHENOLATE SODIUM [Concomitant]
     Indication: PROPHYLAXIS AGAINST TRANSPLANT REJECTION
  4. PREDNISOLONE [Concomitant]
     Indication: PROPHYLAXIS AGAINST TRANSPLANT REJECTION
  5. NIFEDIPINE [Concomitant]
  6. CO-TRIMOXAZOLE [Concomitant]
  7. OMEPRAZOLE [Concomitant]
  8. ASPIRIN [Concomitant]
  9. ATORVASTATIN [Concomitant]
     Dosage: AT NIGHT

REACTIONS (4)
  - Labelled drug-drug interaction medication error [Unknown]
  - Blood creatinine increased [Recovered/Resolved]
  - Drug level increased [Recovered/Resolved]
  - Nephropathy toxic [Unknown]
